FAERS Safety Report 14706280 (Version 2)
Quarter: 2018Q2

REPORT INFORMATION
  Report Type: Spontaneous
  Country: BR (occurrence: BR)
  Receive Date: 20180402
  Receipt Date: 20180426
  Transmission Date: 20180711
  Serious: Yes (Hospitalization, Other)
  Sender: FDA-Public Use
  Company Number: PHHY2018BR056359

PATIENT
  Age: 16 Year
  Sex: Male
  Weight: 28 kg

DRUGS (8)
  1. TEGRETOL [Suspect]
     Active Substance: CARBAMAZEPINE
     Indication: INJURY
     Route: 065
  2. TEGRETOL [Suspect]
     Active Substance: CARBAMAZEPINE
     Indication: HEAD INJURY
     Dosage: 10 ML, TID (8AM, 01PM, 8PM) (CONCENTRATION 100 ML)
     Route: 065
  3. TEGRETOL [Suspect]
     Active Substance: CARBAMAZEPINE
     Dosage: 3 ML, TID
     Route: 065
  4. MOTILIUM [Concomitant]
     Active Substance: DOMPERIDONE
     Indication: PRODUCT USED FOR UNKNOWN INDICATION
     Dosage: 10 ML, TID
     Route: 065
  5. NEOSINE [Concomitant]
     Active Substance: INOSINE PRANOBEX
     Indication: INSOMNIA
     Dosage: 1 DF, QD
     Route: 065
  6. RISPERIDONE. [Concomitant]
     Active Substance: RISPERIDONE
     Indication: MUSCULOSKELETAL STIFFNESS
     Dosage: 2 ML, QD
     Route: 065
  7. RIVOTRIL [Concomitant]
     Active Substance: CLONAZEPAM
     Indication: INSOMNIA
     Dosage: 1 DF, QD
     Route: 065
  8. LABEL [Concomitant]
     Indication: PRODUCT USED FOR UNKNOWN INDICATION
     Dosage: 5 ML, TID
     Route: 065

REACTIONS (6)
  - Nervousness [Recovering/Resolving]
  - Vomiting [Unknown]
  - Choking [Unknown]
  - Bronchospasm [Recovering/Resolving]
  - Pneumonia [Recovering/Resolving]
  - Incorrect route of drug administration [Unknown]

NARRATIVE: CASE EVENT DATE: 20171215
